FAERS Safety Report 8695182 (Version 4)
Quarter: 2014Q3

REPORT INFORMATION
  Report Type: Spontaneous
  Country: US (occurrence: US)
  Receive Date: 20120731
  Receipt Date: 20140807
  Transmission Date: 20150326
  Serious: No
  Sender: FDA-Public Use
  Company Number: US-009507513-1207USA006101

PATIENT
  Age: 82 Year
  Sex: Female

DRUGS (5)
  1. TIMOLOL MALEATE. [Suspect]
     Active Substance: TIMOLOL MALEATE
     Indication: GLAUCOMA
     Dosage: 0.5%, 1 DROP IN THE LEFT EYE IN THE MORNING
     Route: 047
     Dates: start: 2008
  2. TIMOLOL MALEATE. [Suspect]
     Active Substance: TIMOLOL MALEATE
     Dosage: 0.5%, 1 DROP IN THE LEFT EYE IN THE MORNING
     Route: 047
     Dates: start: 20120620
  3. HYDROCHLOROTHIAZIDE (+) TRIAMTERENE [Concomitant]
  4. TIMOLOL MALEATE. [Suspect]
     Active Substance: TIMOLOL MALEATE
     Dosage: 0.5%, 1 DROP IN THE LEFT EYE IN THE MORNING
     Route: 047
     Dates: end: 20120619
  5. XALATAN [Concomitant]
     Active Substance: LATANOPROST

REACTIONS (5)
  - Ocular hyperaemia [Recovered/Resolved]
  - Eye inflammation [Recovered/Resolved]
  - Eye pruritus [Recovered/Resolved]
  - Eye swelling [Recovered/Resolved]
  - Blepharospasm [Not Recovered/Not Resolved]

NARRATIVE: CASE EVENT DATE: 201206
